FAERS Safety Report 8573962-9 (Version None)
Quarter: 2012Q3

REPORT INFORMATION
  Report Type: 
  Country: None (occurrence: None)
  Receive Date: 20120806
  Receipt Date: 20120427
  Transmission Date: 20120928
  Serious: Yes (Hospitalization)
  Sender: FDA-Public Use
  Company Number: JP-009507513-1208JPN002030

PATIENT

DRUGS (5)
  1. REBETOL [Suspect]
     Indication: HEPATITIS C
     Route: 048
     Dates: start: 20120316, end: 20120417
  2. ZOLPIDEM [Concomitant]
     Indication: INSOMNIA
     Route: 048
  3. PEG-INTRON [Suspect]
     Indication: HEPATITIS C
     Dosage: 1.5MCG/KG/WEEK
     Route: 058
     Dates: start: 20120316, end: 20120413
  4. TELAVIC [Suspect]
     Indication: HEPATITIS C
     Route: 048
     Dates: start: 20120316, end: 20120417
  5. URSO 250 [Concomitant]
     Indication: HEPATITIS C
     Route: 048
     Dates: start: 20071205

REACTIONS (3)
  - PYELONEPHRITIS ACUTE [None]
  - SEPSIS [None]
  - METABOLIC ACIDOSIS [None]
